FAERS Safety Report 5128347-4 (Version None)
Quarter: 2006Q4

REPORT INFORMATION
  Report Type: 
  Country: None (occurrence: None)
  Receive Date: 20061017
  Receipt Date: 20041006
  Transmission Date: 20070319
  Serious: Yes (Death)
  Sender: FDA-Public Use
  Company Number: US-PURDUE-USA_2004_0017131

PATIENT
  Age: 29 Year
  Sex: Male
  Weight: 90 kg

DRUGS (8)
  1. OXYCONTIN [Suspect]
     Indication: PAIN
     Dosage: 40 MG, SEE TEXT
     Route: 065
  2. LORCET-HD [Concomitant]
     Indication: DRUG USE FOR UNKNOWN INDICATION
     Dosage: 10 MG, TID
     Route: 065
  3. FIORICET [Concomitant]
     Indication: DRUG USE FOR UNKNOWN INDICATION
     Dosage: UNK MG, TID
     Route: 065
  4. XANAX [Concomitant]
     Indication: DRUG USE FOR UNKNOWN INDICATION
     Dosage: 1 MG, BID
     Route: 065
  5. VIOXX [Concomitant]
     Route: 065
  6. SOMA [Concomitant]
     Route: 065
  7. MORPHINE SULFATE [Suspect]
     Indication: DRUG USE FOR UNKNOWN INDICATION
  8. CODEINE [Suspect]
     Indication: DRUG USE FOR UNKNOWN INDICATION

REACTIONS (18)
  - ARTERIOSCLEROSIS [None]
  - BACK PAIN [None]
  - CEREBRAL HAEMORRHAGE [None]
  - COMPLETED SUICIDE [None]
  - GUN SHOT WOUND [None]
  - HEADACHE [None]
  - HYPOAESTHESIA [None]
  - JAW FRACTURE [None]
  - MUSCLE SPASMS [None]
  - MUSCULOSKELETAL PAIN [None]
  - NECK PAIN [None]
  - PAIN [None]
  - PAIN IN EXTREMITY [None]
  - PULMONARY CONGESTION [None]
  - PULMONARY OEDEMA [None]
  - SKULL FRACTURED BASE [None]
  - SOMNOLENCE [None]
  - TENDERNESS [None]
